FAERS Safety Report 9011965 (Version 3)
Quarter: 2013Q1

REPORT INFORMATION
  Report Type: Spontaneous
  Country: US (occurrence: None)
  Receive Date: 20121228
  Receipt Date: 20130208
  Transmission Date: 20140127
  Serious: No
  Sender: FDA-Public Use
  Company Number: SPI201200383

PATIENT
  Age: 79 Year
  Sex: Female

DRUGS (10)
  1. AMITIZA [Suspect]
     Indication: CONSTIPATION
     Route: 048
     Dates: start: 20121127, end: 20121129
  2. TAKEPRON (LANSOPRAZOLE) [Concomitant]
  3. GASMOTIN (MOSAPRIDE CITRATE HYDRATE) [Concomitant]
  4. MIYA BM (CLOSTRIDIUM BUTYRICUM) [Concomitant]
  5. BAYASPIRIN (ACETYLSALICYLIC ACID) (ACETYLSALICYLIC ACID) [Concomitant]
  6. PURSENNID (SENNA ALEXANDRINA LEAF) [Concomitant]
  7. DIART (AZOSEMIDE) [Concomitant]
  8. NORVASC (AMLODIPINE BESILATE) [Concomitant]
  9. OLMETEC (OLMESARTAN MEDOXOMIL) [Concomitant]
  10. ARTIST (CARVEDILOL) [Concomitant]

REACTIONS (5)
  - Tachycardia [None]
  - Nausea [None]
  - Abdominal discomfort [None]
  - Malaise [None]
  - Feeling abnormal [None]
